FAERS Safety Report 7379013-6 (Version None)
Quarter: 2011Q1

REPORT INFORMATION
  Report Type: 
  Country: None (occurrence: None)
  Receive Date: 20110324
  Receipt Date: 20110324
  Transmission Date: 20110831
  Serious: Yes (Hospitalization)
  Sender: FDA-Public Use
  Company Number: None

PATIENT
  Age: 49 Year
  Sex: Female
  Weight: 83.9154 kg

DRUGS (6)
  1. BENADRYL? SEVERE ALLERGY PLUS SI MAXIMUM-325MG/25MG/5MG MCNEIL UPC: 30 [Suspect]
     Indication: SNEEZING
     Dosage: -1- CAPLET X 1 DAY ONE DAY PO
     Route: 048
     Dates: start: 20110308, end: 20110308
  2. BENADRYL? SEVERE ALLERGY PLUS SI MAXIMUM-325MG/25MG/5MG MCNEIL UPC: 30 [Suspect]
     Indication: HYPERSENSITIVITY
     Dosage: -1- CAPLET X 1 DAY ONE DAY PO
     Route: 048
     Dates: start: 20110308, end: 20110308
  3. BENADRYL? SEVERE ALLERGY PLUS SI MAXIMUM-325MG/25MG/5MG MCNEIL UPC: 30 [Suspect]
     Indication: SINUSITIS
     Dosage: -1- CAPLET X 1 DAY ONE DAY PO
     Route: 048
     Dates: start: 20110308, end: 20110308
  4. BENADRYL? SEVERE ALLERGY PLUS SI MAXIMUM-325MG/25MG/5MG MCNEIL UPC: 30 [Suspect]
     Indication: SINUSITIS
     Dosage: -2- CAPLETX X 5 DAYS ONCE A DAY PO
     Route: 048
     Dates: start: 20110226, end: 20110302
  5. BENADRYL? SEVERE ALLERGY PLUS SI MAXIMUM-325MG/25MG/5MG MCNEIL UPC: 30 [Suspect]
     Indication: HYPERSENSITIVITY
     Dosage: -2- CAPLETX X 5 DAYS ONCE A DAY PO
     Route: 048
     Dates: start: 20110226, end: 20110302
  6. BENADRYL? SEVERE ALLERGY PLUS SI MAXIMUM-325MG/25MG/5MG MCNEIL UPC: 30 [Suspect]
     Indication: SNEEZING
     Dosage: -2- CAPLETX X 5 DAYS ONCE A DAY PO
     Route: 048
     Dates: start: 20110226, end: 20110302

REACTIONS (13)
  - DISTURBANCE IN ATTENTION [None]
  - NAUSEA [None]
  - EYE IRRITATION [None]
  - FATIGUE [None]
  - DIZZINESS [None]
  - PRODUCT QUALITY ISSUE [None]
  - PALPITATIONS [None]
  - MUSCLE TWITCHING [None]
  - DECREASED APPETITE [None]
  - DYSPNOEA [None]
  - INSOMNIA [None]
  - CHEST PAIN [None]
  - HEADACHE [None]
